FAERS Safety Report 7769992-7 (Version None)
Quarter: 2011Q3

REPORT INFORMATION
  Report Type: 
  Country: None (occurrence: None)
  Receive Date: 20110922
  Receipt Date: 20110425
  Transmission Date: 20111222
  Serious: No
  Sender: FDA-Public Use
  Company Number: US-ASTRAZENECA-2009UW13712

PATIENT
  Age: 57 Year
  Sex: Female
  Weight: 244.9 kg

DRUGS (21)
  1. TRAZODONE HCL [Concomitant]
     Dates: start: 19940101, end: 20040101
  2. LEXAPRO [Concomitant]
     Dates: start: 20030101
  3. CHONDROITIN [Concomitant]
  4. KLONOPIN [Concomitant]
     Dates: start: 20030101
  5. SUMVASTATIN [Concomitant]
  6. EFFEXOR [Concomitant]
     Dates: start: 20030101
  7. CLOZAPINE [Concomitant]
     Dates: start: 19960101
  8. SINGULAIR [Concomitant]
  9. NASACORT [Concomitant]
  10. BABY ASPRIN [Concomitant]
  11. ALBUTEROL [Concomitant]
     Dates: start: 20030101
  12. SEROQUEL [Suspect]
     Route: 048
     Dates: start: 20031021
  13. PAXIL [Concomitant]
     Dates: start: 19940101, end: 20040101
  14. HALDOL [Concomitant]
     Dates: start: 19970101
  15. MAGNESIUM [Concomitant]
  16. SEROQUEL [Suspect]
     Indication: SLEEP DISORDER
     Dosage: 100 MG - 200 MG
     Route: 048
     Dates: start: 19990101
  17. SEROQUEL [Suspect]
     Indication: DEPRESSION
     Dosage: 100 MG - 200 MG
     Route: 048
     Dates: start: 19990101
  18. SEROQUEL [Suspect]
     Route: 048
     Dates: start: 20031021
  19. ZOLOFT [Concomitant]
     Dates: start: 19940101, end: 20040101
  20. WELLBUTRIN [Concomitant]
     Dates: start: 19940101, end: 20040101
  21. NAPROXEN (ALEVE) [Concomitant]

REACTIONS (3)
  - BLOOD TRIGLYCERIDES INCREASED [None]
  - TYPE 2 DIABETES MELLITUS [None]
  - LIGAMENT SPRAIN [None]
